FAERS Safety Report 23137162 (Version 1)
Quarter: 2023Q4

REPORT INFORMATION
  Report Type: Spontaneous
  Country: FR (occurrence: FR)
  Receive Date: 20231102
  Receipt Date: 20231102
  Transmission Date: 20240110
  Serious: Yes (Other)
  Sender: FDA-Public Use
  Company Number: None

PATIENT
  Age: 64 Year
  Sex: Male

DRUGS (6)
  1. VELCADE [Suspect]
     Active Substance: BORTEZOMIB
     Indication: Plasma cell myeloma
     Dosage: 52.8 MILLIGRAM
     Route: 058
     Dates: start: 20210110, end: 20210430
  2. DEXAMETHASONE [Suspect]
     Active Substance: DEXAMETHASONE
     Indication: Plasma cell myeloma
     Dosage: 2560 MILLIGRAM
     Route: 048
     Dates: start: 20210110, end: 20210430
  3. MELPHALAN [Suspect]
     Active Substance: MELPHALAN
     Indication: Plasma cell myeloma
     Dosage: 320 MILLIGRAM
     Route: 042
     Dates: start: 20210529, end: 20210529
  4. THALIDOMIDE [Suspect]
     Active Substance: THALIDOMIDE
     Indication: Plasma cell myeloma
     Dosage: 16800 MILLIGRAM
     Route: 048
     Dates: start: 20210110, end: 20210430
  5. REVLIMID [Suspect]
     Active Substance: LENALIDOMIDE
     Indication: Plasma cell myeloma
     Dosage: 210 MILLIGRAM
     Route: 048
     Dates: start: 20210906, end: 202305
  6. KARDEGIC [Concomitant]
     Active Substance: ASPIRIN DL-LYSINE
     Indication: Thrombosis prophylaxis
     Dosage: 75 MILLIGRAM, QD
     Route: 048
     Dates: start: 20210906

REACTIONS (1)
  - Cutaneous T-cell lymphoma [Recovering/Resolving]

NARRATIVE: CASE EVENT DATE: 20230501
